FAERS Safety Report 10374703 (Version 1)
Quarter: 2014Q1

REPORT INFORMATION
  Report Type: Spontaneous
  Country: US (occurrence: None)
  Receive Date: 20140306
  Receipt Date: 20140306
  Transmission Date: 20141002
  Serious: Yes (Hospitalization, Other)
  Sender: FDA-Public Use
  Company Number: 163-21880-13063446

PATIENT
  Age: 75 Year
  Sex: Female
  Weight: 49.44 kg

DRUGS (22)
  1. REVLIMID (LENALIDOMIDE) (10 MILLIGRAMS, CAPSULES) [Suspect]
     Indication: ACUTE MYELOID LEUKAEMIA
     Route: 048
     Dates: start: 20130506
  2. ADVAIR DISKUS (SERETIDINE MITE) [Concomitant]
  3. ALPRAZOLAM [Concomitant]
  4. AMLODIPINE BESYLATE (AMLODIPINE BESILATE) [Concomitant]
  5. ISOSORBIDE MONONITRATE ER [Concomitant]
  6. LEVOTHYROXINE SODIUM [Concomitant]
  7. METOPROLOL TARTRATE [Concomitant]
  8. TRAMADOL HCL [Concomitant]
  9. VITAMIN D (COLECALCIFEROL) [Concomitant]
  10. DACOGEN (DECITABINE) [Concomitant]
  11. VIDAZA (AZACITIDINE) [Concomitant]
  12. MEGACE (MEGESTROL ACETATE) [Concomitant]
  13. NITROGLYCERINE (GLYCERYL TRINITRATE) [Concomitant]
  14. VYTORIN (INEGY) [Concomitant]
  15. AMBIEN (ZOLPIDEM TARTRATE) [Concomitant]
  16. HYDROCHLOROTHIAZIDE [Concomitant]
  17. XANAX (ALPRAZOLAM) [Concomitant]
  18. PROZAC (FLUOXETINE HYDROCHLORIDE) [Concomitant]
  19. CHOLECALCIFEROL (COLECALCIFEROL) [Concomitant]
  20. IMDUR (ISOSORBIDE MONONITRATE) [Concomitant]
  21. NITROSTAT (GLYCERYL TRINITRATE) [Concomitant]
  22. VICODIN [Concomitant]

REACTIONS (2)
  - Ischaemic stroke [None]
  - Thrombocytopenia [None]
